FAERS Safety Report 10068077 (Version 3)
Quarter: 2014Q2

REPORT INFORMATION
  Report Type: Spontaneous
  Country: DE (occurrence: DE)
  Receive Date: 20140409
  Receipt Date: 20140617
  Transmission Date: 20141212
  Serious: Yes (Death, Hospitalization, Other)
  Sender: FDA-Public Use
  Company Number: DE-JNJFOC-20140405595

PATIENT
  Age: 83 Year
  Sex: Male
  Weight: 80 kg

DRUGS (13)
  1. EUBIOL [Concomitant]
     Dosage: 1-0-1
     Route: 065
  2. NOVOMIX [Concomitant]
     Dosage: 30 24 IU-0-101IU
     Route: 065
  3. XARELTO [Suspect]
     Indication: ATRIAL FIBRILLATION
     Route: 048
     Dates: end: 20140320
  4. XARELTO [Suspect]
     Indication: CEREBROVASCULAR ACCIDENT PROPHYLAXIS
     Route: 048
     Dates: end: 20140320
  5. PRAVASTATIN [Concomitant]
     Dosage: 40 0-0-1
     Route: 065
  6. BISOPROLOL [Concomitant]
     Dosage: 2.5 1-0-1
     Route: 065
  7. NEXIUM [Concomitant]
     Route: 065
  8. AMIODARONE [Concomitant]
     Route: 065
  9. ASA [Concomitant]
     Route: 065
  10. NOVALGIN [Concomitant]
     Dosage: 300 1-1-1
     Route: 065
  11. XIPAMIDE [Concomitant]
     Dosage: 10 1-0-0
     Route: 065
  12. SPIRONOLACTONE [Concomitant]
     Route: 065
  13. TOREM [Concomitant]
     Dosage: 10 1-1-0
     Route: 065

REACTIONS (6)
  - Cardiac failure [Fatal]
  - Fluid retention [Recovered/Resolved]
  - Generalised oedema [Recovered/Resolved]
  - Haematuria [Recovered/Resolved]
  - Blood urine present [Recovered/Resolved]
  - Pain [Recovered/Resolved]
